FAERS Safety Report 8773350 (Version 3)
Quarter: 2012Q4

REPORT INFORMATION
  Report Type: 
  Country: US (occurrence: US)
  Receive Date: 20120907
  Receipt Date: 20121231
  Transmission Date: 20130627
  Serious: Yes (Hospitalization, Other)
  Sender: FDA-Public Use
  Company Number: US-BAYER-2012-092203

PATIENT
  Age: 20 Year
  Sex: Female
  Weight: 41.72 kg

DRUGS (4)
  1. YAZ [Suspect]
     Indication: IRREGULAR PERIODS
     Dosage: UNK
     Dates: start: 200907, end: 200909
  2. PRILOSEC [Concomitant]
  3. RANITIDINE [Concomitant]
     Dosage: 150 mg, UNK
  4. MOTRIN [Concomitant]

REACTIONS (12)
  - Cholecystectomy [None]
  - Cholecystitis chronic [None]
  - Injury [None]
  - Off label use [None]
  - Abdominal distension [None]
  - Flatulence [None]
  - Dyspepsia [None]
  - Constipation [None]
  - Diarrhoea [None]
  - Anxiety [None]
  - Depression [None]
  - Scar [None]
